FAERS Safety Report 6369796-6 (Version None)
Quarter: 2009Q3

REPORT INFORMATION
  Report Type: 
  Country: None (occurrence: None)
  Receive Date: 20090923
  Receipt Date: 20090914
  Transmission Date: 20100115
  Serious: Yes (Hospitalization)
  Sender: FDA-Public Use
  Company Number: FR-ASTRAZENECA-2009SE13166

PATIENT
  Age: 31366 Day
  Sex: Female
  Weight: 48 kg

DRUGS (14)
  1. MOPRAL [Suspect]
     Route: 048
     Dates: start: 20090601
  2. PARACETAMOL [Suspect]
     Route: 048
  3. NOVONORM [Suspect]
     Route: 048
     Dates: start: 20090703, end: 20090727
  4. NOVONORM [Suspect]
     Route: 048
     Dates: start: 20090803, end: 20090828
  5. TARDYFERON [Suspect]
     Route: 048
     Dates: start: 20090701
  6. FORLAX [Suspect]
     Route: 048
  7. PLAVIX [Suspect]
     Route: 048
  8. TRIATEC [Suspect]
     Route: 048
  9. LANTUS [Suspect]
  10. CACIT VITAMIN D3 [Suspect]
     Route: 048
  11. CARTROL [Concomitant]
     Route: 047
  12. CATACOL [Concomitant]
     Route: 047
  13. MYCOSTER [Concomitant]
  14. ECONAZOLE NITRATE [Concomitant]

REACTIONS (2)
  - INFLAMMATION [None]
  - PYREXIA [None]
